FAERS Safety Report 24147646 (Version 2)
Quarter: 2024Q3

REPORT INFORMATION
  Report Type: Spontaneous
  Country: US (occurrence: US)
  Receive Date: 20240729
  Receipt Date: 20240802
  Transmission Date: 20241017
  Serious: Yes (Other)
  Sender: PFIZER
  Company Number: US-PFIZER INC-PV202400097094

PATIENT
  Age: 62 Year
  Sex: Female

DRUGS (3)
  1. DOXORUBICIN HYDROCHLORIDE [Suspect]
     Active Substance: DOXORUBICIN HYDROCHLORIDE
     Indication: Nephroblastoma
     Dosage: 45 MG/M2, CYCLIC (IN NINE 21-DAY CYCLE)
  2. VINCRISTINE SULFATE [Suspect]
     Active Substance: VINCRISTINE SULFATE
     Indication: Nephroblastoma
     Dosage: 2 MG, ON DAYS 1, 8, AND 15] IN NINE 21-DAY CYCLES
  3. DACTINOMYCIN [Suspect]
     Active Substance: DACTINOMYCIN
     Indication: Nephroblastoma
     Dosage: 45 UG/M2, CYCLIC (IN NINE 21-DAY CYCLES)

REACTIONS (2)
  - Neuropathy peripheral [Unknown]
  - Nausea [Unknown]
